FAERS Safety Report 8533832-9 (Version None)
Quarter: 2012Q3

REPORT INFORMATION
  Report Type: 
  Country: None (occurrence: None)
  Receive Date: 20120724
  Receipt Date: 20120713
  Transmission Date: 20120928
  Serious: Yes (Hospitalization)
  Sender: FDA-Public Use
  Company Number: DE-ROCHE-1068766

PATIENT
  Sex: Female
  Weight: 59 kg

DRUGS (19)
  1. HERCEPTIN [Suspect]
     Route: 042
     Dates: start: 20120516
  2. DOXORUBICIN HYDROCHLORIDE [Suspect]
     Route: 042
     Dates: start: 20120516
  3. DOXORUBICIN HYDROCHLORIDE [Suspect]
     Route: 042
  4. DOXORUBICIN HYDROCHLORIDE [Suspect]
     Indication: BREAST CANCER
     Dosage: LAST DOSE PRIOR TO ADVERSE EVENT: 03 MAY 2012
     Route: 042
     Dates: start: 20120419, end: 20120510
  5. JUTABIS [Concomitant]
     Dates: start: 20060101
  6. ORTHOMOL PRODUCT NOS [Concomitant]
     Dates: start: 20120430
  7. HERCEPTIN [Suspect]
     Route: 042
  8. PACLITAXEL [Suspect]
     Route: 042
     Dates: start: 20120516
  9. LOPERAMIDE [Concomitant]
     Dates: start: 20120422, end: 20120502
  10. PANTOPRAZOLE [Concomitant]
     Dates: start: 19820101
  11. HERCEPTIN [Suspect]
     Indication: BREAST CANCER
     Dosage: LAST DOSE ADMINISTERED ON 19/APR/2012
     Route: 042
     Dates: start: 20120419, end: 20120510
  12. LAPATINIB [Suspect]
     Indication: BREAST CANCER
     Dosage: LAST DOSE ADMINISTERED ON 8/MAY/2012
     Route: 048
     Dates: start: 20120419, end: 20120509
  13. LAPATINIB [Suspect]
     Route: 048
     Dates: start: 20120518
  14. MAALOXAN [Concomitant]
     Dates: start: 20120427
  15. PACLITAXEL [Suspect]
     Route: 042
  16. NOVALGIN [Concomitant]
     Dosage: AS NEEDED.
     Dates: start: 19930101
  17. SELENIUM [Concomitant]
     Dates: start: 20120430
  18. MILK THISTLE [Concomitant]
     Dates: start: 20120430
  19. PACLITAXEL [Suspect]
     Indication: BREAST CANCER
     Dosage: LAST DOSE PRIOR TO ADVERSE EVENT 03 MAY 2012
     Route: 042
     Dates: start: 20120419, end: 20120510

REACTIONS (2)
  - GENERAL PHYSICAL HEALTH DETERIORATION [None]
  - PARAESTHESIA ORAL [None]
